FAERS Safety Report 8913062 (Version 3)
Quarter: 2014Q2

REPORT INFORMATION
  Report Type: Spontaneous
  Country: DE (occurrence: None)
  Receive Date: 20121113
  Receipt Date: 20140407
  Transmission Date: 20141212
  Serious: Yes (Hospitalization)
  Sender: FDA-Public Use
  Company Number: DE-010015

PATIENT
  Age: 59 Year
  Sex: Male
  Weight: 85 kg

DRUGS (2)
  1. DEGARELIX (FIRMAGON) (240 MG, 80 MG) [Suspect]
     Indication: PROSTATE CANCER
     Dosage: 80 MG 1XMONTH S.C.
     Route: 058
     Dates: start: 20120117, end: 20120117
  2. BLOPRESS [Concomitant]

REACTIONS (6)
  - Injection site abscess [None]
  - Scar [None]
  - Wound secretion [None]
  - Injection site erythema [None]
  - Swelling [None]
  - Pain [None]
